FAERS Safety Report 9164862 (Version 1)
Quarter: 2013Q1

REPORT INFORMATION
  Report Type: Spontaneous
  Country: GB (occurrence: None)
  Receive Date: 20130222
  Receipt Date: 20130222
  Transmission Date: 20140127
  Serious: Yes (Disabling)
  Sender: FDA-Public Use
  Company Number: GB-1196614

PATIENT
  Age: 92 Year
  Sex: Female
  Weight: 53 kg

DRUGS (12)
  1. CILOXAN [Suspect]
     Dates: start: 20130121
  2. ANGEZE?A [Concomitant]
  3. ASPIRIN [Concomitant]
  4. BISOPROLOL [Concomitant]
  5. CLOPIDOGREL [Concomitant]
  6. CO-CODAMOL [Concomitant]
  7. EZETIMIBE [Concomitant]
  8. FUROSEMIDE [Concomitant]
  9. LOSARTAN [Concomitant]
  10. NITROFURANTOIN [Concomitant]
  11. OMEPRAZOLE [Concomitant]
  12. SIMVASTATIN [Concomitant]

REACTIONS (1)
  - Tendonitis [None]
